FAERS Safety Report 5314672-0 (Version None)
Quarter: 2007Q2

REPORT INFORMATION
  Report Type: 
  Country: None (occurrence: None)
  Receive Date: 20070426
  Receipt Date: 20070413
  Transmission Date: 20071010
  Serious: Yes (Other)
  Sender: FDA-Public Use
  Company Number: SPV1-2007-02124

PATIENT
  Age: 11 Year
  Sex: Male
  Weight: 35.4 kg

DRUGS (5)
  1. DAYTRANA [Suspect]
     Indication: ATTENTION DEFICIT/HYPERACTIVITY DISORDER
     Dosage: 20 MG, TRANSDERMAL
     Route: 062
     Dates: start: 20061001, end: 20061101
  2. DAYTRANA [Suspect]
     Indication: ATTENTION DEFICIT/HYPERACTIVITY DISORDER
     Dosage: 20 MG, TRANSDERMAL
     Route: 062
     Dates: start: 20061101
  3. DAYTRANA [Suspect]
  4. BENADRYL [Concomitant]
  5. MELATONIN (MELATONIN) [Concomitant]

REACTIONS (7)
  - CHEST PAIN [None]
  - DRUG EFFECT DECREASED [None]
  - ELECTROCARDIOGRAM ABNORMAL [None]
  - LIVEDO RETICULARIS [None]
  - MITRAL VALVE INCOMPETENCE [None]
  - MITRAL VALVE PROLAPSE [None]
  - SWEAT GLAND DISORDER [None]
